FAERS Safety Report 8971611 (Version 1)
Quarter: 2012Q4

REPORT INFORMATION
  Report Type: 
  Country: PH (occurrence: PH)
  Receive Date: 20121217
  Receipt Date: 20121217
  Transmission Date: 20130627
  Serious: Yes (Other)
  Sender: FDA-Public Use
  Company Number: PH-B.I. PHARMACEUTICALS,INC./RIDGEFIELD-2012-CS-01755RP

PATIENT

DRUGS (1)
  1. TRAJENTA [Suspect]
     Indication: DIABETES MELLITUS
     Dosage: 5 mg
     Route: 048

REACTIONS (1)
  - Rhabdomyolysis [Unknown]
